FAERS Safety Report 5940337-8 (Version None)
Quarter: 2008Q4

REPORT INFORMATION
  Report Type: 
  Country: None (occurrence: None)
  Receive Date: 20081104
  Receipt Date: 20081031
  Transmission Date: 20090506
  Serious: Yes (Other)
  Sender: FDA-Public Use
  Company Number: DE-BRISTOL-MYERS SQUIBB COMPANY-14391338

PATIENT
  Age: 44 Year
  Sex: Male

DRUGS (3)
  1. TRIAMCINOLONE ACETONIDE [Suspect]
     Indication: NERVE ROOT COMPRESSION
     Dosage: 20MG CRYSTAL SUSPENSION
     Route: 053
  2. MEPIVACAINE HCL [Suspect]
     Indication: NERVE ROOT COMPRESSION
     Dosage: 1% INJECTION
     Route: 053
  3. ISOVIST [Suspect]
     Indication: NERVE ROOT COMPRESSION
     Dosage: INJECTION
     Route: 053

REACTIONS (1)
  - ANTERIOR SPINAL ARTERY SYNDROME [None]
